FAERS Safety Report 8496109-6 (Version None)
Quarter: 2012Q3

REPORT INFORMATION
  Report Type: 
  Country: None (occurrence: None)
  Receive Date: 20120709
  Receipt Date: 20120627
  Transmission Date: 20120928
  Serious: Yes (Other)
  Sender: FDA-Public Use
  Company Number: IT-JNJFOC-20120700613

PATIENT
  Age: 34 Year
  Sex: Male

DRUGS (6)
  1. CHLORPROMAZINE HCL [Suspect]
     Indication: SCHIZOPHRENIA
     Route: 065
  2. HALOPERIDOL [Suspect]
     Indication: SCHIZOPHRENIA
     Route: 048
  3. RISPERIDONE [Suspect]
     Indication: SCHIZOPHRENIA
     Route: 048
  4. DIAZEPAM [Suspect]
     Route: 048
  5. DIAZEPAM [Suspect]
     Indication: SCHIZOPHRENIA
     Route: 048
  6. FLURAZEPAM [Suspect]
     Indication: SCHIZOPHRENIA
     Route: 065

REACTIONS (2)
  - PULMONARY EMBOLISM [None]
  - AGGRESSION [None]
